FAERS Safety Report 7514775-6 (Version None)
Quarter: 2011Q2

REPORT INFORMATION
  Report Type: 
  Country: None (occurrence: None)
  Receive Date: 20110601
  Receipt Date: 20110526
  Transmission Date: 20111010
  Serious: Yes (Other)
  Sender: FDA-Public Use
  Company Number: US-AMGEN-USASP2011027146

PATIENT
  Sex: Male

DRUGS (2)
  1. RITUXIMAB [Concomitant]
  2. NPLATE [Suspect]
     Indication: IDIOPATHIC THROMBOCYTOPENIC PURPURA
     Dates: start: 20101214

REACTIONS (1)
  - HAEMATOLOGICAL MALIGNANCY [None]
